FAERS Safety Report 14371034 (Version 2)
Quarter: 2018Q2

REPORT INFORMATION
  Report Type: Spontaneous
  Country: US (occurrence: US)
  Receive Date: 20180110
  Receipt Date: 20180615
  Transmission Date: 20180711
  Serious: Yes (Other)
  Sender: FDA-Public Use
  Company Number: US-ASTRAZENECA-2018SE01570

PATIENT
  Age: 22645 Day
  Sex: Female

DRUGS (23)
  1. METOPROLOL TARTRATE. [Concomitant]
     Active Substance: METOPROLOL TARTRATE
  2. DIAZEPAM. [Concomitant]
     Active Substance: DIAZEPAM
  3. ESTRADIOL. [Concomitant]
     Active Substance: ESTRADIOL
  4. FLUCONAZOLE. [Concomitant]
     Active Substance: FLUCONAZOLE
  5. ESTRADIOL. [Concomitant]
     Active Substance: ESTRADIOL
  6. PRILOSEC [Suspect]
     Active Substance: OMEPRAZOLE MAGNESIUM
     Indication: GASTROOESOPHAGEAL REFLUX DISEASE
     Route: 048
     Dates: start: 20111012
  7. FUROSEMIDE. [Concomitant]
     Active Substance: FUROSEMIDE
  8. LIDODERM [Concomitant]
     Active Substance: LIDOCAINE
  9. KLOR-CON [Concomitant]
     Active Substance: POTASSIUM CHLORIDE
  10. ATORVASTATIN [Concomitant]
     Active Substance: ATORVASTATIN
  11. GLIPIZIDE. [Concomitant]
     Active Substance: GLIPIZIDE
  12. METOPROLOL TARTRATE. [Concomitant]
     Active Substance: METOPROLOL TARTRATE
  13. DIAZEPAM. [Concomitant]
     Active Substance: DIAZEPAM
  14. METFORMIN [Concomitant]
     Active Substance: METFORMIN HYDROCHLORIDE
  15. LEVOTHYROXINE. [Concomitant]
     Active Substance: LEVOTHYROXINE
  16. DIAZEPAM. [Concomitant]
     Active Substance: DIAZEPAM
  17. PRILOSEC [Suspect]
     Active Substance: OMEPRAZOLE MAGNESIUM
     Indication: GASTROOESOPHAGEAL REFLUX DISEASE
     Route: 048
     Dates: start: 2000, end: 2014
  18. ESTRADIOL. [Concomitant]
     Active Substance: ESTRADIOL
  19. AMITIZA [Concomitant]
     Active Substance: LUBIPROSTONE
  20. LEVOTHYROXINE SODIUM. [Concomitant]
     Active Substance: LEVOTHYROXINE SODIUM
  21. PRILOSEC OTC [Suspect]
     Active Substance: OMEPRAZOLE MAGNESIUM
     Indication: GASTROOESOPHAGEAL REFLUX DISEASE
     Route: 048
  22. DIAZEPAM. [Concomitant]
     Active Substance: DIAZEPAM
  23. GEMFIBROZIL. [Concomitant]
     Active Substance: GEMFIBROZIL

REACTIONS (3)
  - Chronic kidney disease [Unknown]
  - Renal injury [Unknown]
  - Acute kidney injury [Unknown]

NARRATIVE: CASE EVENT DATE: 20150224
